FAERS Safety Report 14845089 (Version 3)
Quarter: 2021Q2

REPORT INFORMATION
  Report Type: Spontaneous
  Country: US (occurrence: US)
  Receive Date: 20180504
  Receipt Date: 20210603
  Transmission Date: 20210716
  Serious: Yes (Disabling, Other)
  Sender: FDA-Public Use
  Company Number: US-CIPLA (EU) LIMITED-2017US11249

PATIENT

DRUGS (17)
  1. SERTRALINE [Suspect]
     Active Substance: SERTRALINE HYDROCHLORIDE
     Indication: MAJOR DEPRESSION
     Dosage: 125 MILLIGRAM, QD
     Route: 048
     Dates: start: 2018
  2. SERTRALINE [Suspect]
     Active Substance: SERTRALINE HYDROCHLORIDE
     Indication: PANIC DISORDER
     Dosage: 175 MILLIGRAM, QD (MORNING) (50 MG TABLETS)
     Route: 065
     Dates: start: 20210406, end: 20210406
  3. BACLOFEN. [Concomitant]
     Active Substance: BACLOFEN
     Indication: MUSCLE SPASTICITY
     Dosage: 10 MILLIGRAM, PRN
     Route: 065
  4. SERTRALINE [Suspect]
     Active Substance: SERTRALINE HYDROCHLORIDE
     Indication: POST-TRAUMATIC STRESS DISORDER
     Dosage: 175 MILLIGRAM, QD (25 MG TABLETS)
     Route: 065
     Dates: start: 202104
  5. VITAMIN D [VITAMIN D NOS] [Concomitant]
     Active Substance: VITAMIN D NOS
     Indication: VITAMIN SUPPLEMENTATION
     Dosage: 10000 UI, UNK
     Route: 065
  6. TOPIRAMATE. [Suspect]
     Active Substance: TOPIRAMATE
     Indication: GENERALISED TONIC-CLONIC SEIZURE
     Dosage: 100 MILLIGRAM, CAMBER
     Route: 065
     Dates: start: 2009
  7. TOPIRAMATE. [Suspect]
     Active Substance: TOPIRAMATE
     Dosage: 125 MILLIGRAM, INVAGEN
     Route: 065
  8. TRAMADOL. [Concomitant]
     Active Substance: TRAMADOL
     Indication: PAIN
     Dosage: 100 MILLIGRAM, BID
     Route: 065
     Dates: start: 2000
  9. TOPIRAMATE. [Suspect]
     Active Substance: TOPIRAMATE
     Dosage: 150 MILLIGRAM, INVAGEN
     Route: 065
  10. SERTRALINE [Suspect]
     Active Substance: SERTRALINE HYDROCHLORIDE
     Indication: OBSESSIVE-COMPULSIVE DISORDER
     Dosage: 150 MILLIGRAM, QD
     Route: 048
  11. DIAZEPAM. [Concomitant]
     Active Substance: DIAZEPAM
     Indication: STRESS
     Dosage: 7.5 MILLIGRAM, BID
     Route: 065
     Dates: start: 2001
  12. TOPIRAMATE. [Suspect]
     Active Substance: TOPIRAMATE
     Indication: MULTIPLE SCLEROSIS
     Dosage: 100 MG AT NOON AND 125 MG AT NIGHT, BID
     Route: 065
     Dates: start: 2007
  13. DIAZEPAM. [Concomitant]
     Active Substance: DIAZEPAM
     Indication: MUSCLE SPASMS
  14. TOPIRAMATE. [Suspect]
     Active Substance: TOPIRAMATE
     Indication: HEADACHE
     Dosage: 100 MILLIGRAM, INVAGEN
     Route: 065
  15. DIAZEPAM. [Concomitant]
     Active Substance: DIAZEPAM
     Indication: BLOOD GLUCOSE ABNORMAL
  16. SERTRALINE [Suspect]
     Active Substance: SERTRALINE HYDROCHLORIDE
     Indication: DEPRESSION
  17. LEVOTHYROXINE. [Concomitant]
     Active Substance: LEVOTHYROXINE
     Indication: HYPOTHYROIDISM
     Dosage: 100 MILLIGRAM, QD
     Route: 065

REACTIONS (22)
  - Suicidal ideation [Recovered/Resolved]
  - Product substitution issue [Unknown]
  - Visual impairment [Not Recovered/Not Resolved]
  - Product size issue [Unknown]
  - Anxiety [Not Recovered/Not Resolved]
  - Dry mouth [Not Recovered/Not Resolved]
  - Drug ineffective [Unknown]
  - Panic attack [Not Recovered/Not Resolved]
  - Product use in unapproved indication [Not Recovered/Not Resolved]
  - Treatment noncompliance [Unknown]
  - Product formulation issue [Unknown]
  - Ocular hyperaemia [Not Recovered/Not Resolved]
  - Decreased appetite [Unknown]
  - Dysphagia [Unknown]
  - Off label use [Not Recovered/Not Resolved]
  - Therapeutic product effect variable [Recovered/Resolved]
  - Wrong technique in product usage process [Unknown]
  - Body height decreased [Unknown]
  - Depression [Not Recovered/Not Resolved]
  - Palpitations [Not Recovered/Not Resolved]
  - Dry eye [Not Recovered/Not Resolved]
  - Crying [Recovered/Resolved]

NARRATIVE: CASE EVENT DATE: 2007
